FAERS Safety Report 6840250-8 (Version None)
Quarter: 2010Q3

REPORT INFORMATION
  Report Type: 
  Country: None (occurrence: None)
  Receive Date: 20100714
  Receipt Date: 20100707
  Transmission Date: 20110219
  Serious: Yes (Other)
  Sender: FDA-Public Use
  Company Number: PHHO2010US10404

PATIENT

DRUGS (2)
  1. AFINITOR [Suspect]
     Indication: THYMOMA
     Dosage: UNK
  2. EPO 906 [Suspect]
     Indication: THYMOMA

REACTIONS (1)
  - NEUROPATHY PERIPHERAL [None]
